FAERS Safety Report 6853395-3 (Version None)
Quarter: 2010Q3

REPORT INFORMATION
  Report Type: 
  Country: None (occurrence: None)
  Receive Date: 20100717
  Receipt Date: 20071206
  Transmission Date: 20110219
  Serious: No
  Sender: FDA-Public Use
  Company Number: US-PFIZER INC-2007104527

PATIENT
  Sex: Female
  Weight: 61.2 kg

DRUGS (7)
  1. CHANTIX [Suspect]
     Indication: SMOKING CESSATION THERAPY
     Route: 048
     Dates: start: 20071108
  2. NICOTINE [Suspect]
     Indication: SMOKING CESSATION THERAPY
     Route: 061
     Dates: end: 20071101
  3. PLAVIX [Concomitant]
  4. ACETYLSALICYLIC ACID [Concomitant]
  5. METOPROLOL [Concomitant]
     Indication: HYPERTENSION
  6. PROTONIX [Concomitant]
  7. LIPITOR [Concomitant]

REACTIONS (5)
  - ANGINA PECTORIS [None]
  - DEPRESSION [None]
  - FEELING JITTERY [None]
  - PANIC ATTACK [None]
  - TREMOR [None]
